FAERS Safety Report 11090438 (Version 2)
Quarter: 2015Q2

REPORT INFORMATION
  Report Type: Spontaneous
  Country: US (occurrence: US)
  Receive Date: 20150505
  Receipt Date: 20150526
  Transmission Date: 20150821
  Serious: No
  Sender: FDA-Public Use
  Company Number: US-VERTEX PHARMACEUTICALS-2015-001813

PATIENT
  Sex: Female

DRUGS (8)
  1. AZITHROMYCIN [Concomitant]
     Active Substance: AZITHROMYCIN ANHYDROUS
  2. LEVEMIR [Concomitant]
     Active Substance: INSULIN DETEMIR
  3. VITAMINS [Concomitant]
     Active Substance: VITAMINS
  4. TRADJENTA [Concomitant]
     Active Substance: LINAGLIPTIN
  5. PREVACID [Concomitant]
     Active Substance: LANSOPRAZOLE
     Dosage: UNK, QD
  6. AMIKACIN [Concomitant]
     Active Substance: AMIKACIN
  7. HYDROCHLOROTHIAZIDE. [Concomitant]
     Active Substance: HYDROCHLOROTHIAZIDE
  8. KALYDECO [Suspect]
     Active Substance: IVACAFTOR
     Indication: CYSTIC FIBROSIS
     Dosage: 150 MG, BID
     Route: 048
     Dates: start: 20120503

REACTIONS (1)
  - Nasopharyngitis [Recovered/Resolved]
